FAERS Safety Report 5733918-8 (Version None)
Quarter: 2008Q2

REPORT INFORMATION
  Report Type: 
  Country: None (occurrence: None)
  Receive Date: 20080509
  Receipt Date: 20080417
  Transmission Date: 20081010
  Serious: No
  Sender: FDA-Public Use
  Company Number: US-BOEHRINGER INGELHEIM GMBH, GERMANY-2008-BP-06079BP

PATIENT
  Age: 68 Year
  Sex: Male

DRUGS (1)
  1. MIRAPEX [Suspect]

REACTIONS (4)
  - HYPERPHAGIA [None]
  - PATHOLOGICAL GAMBLING [None]
  - SLEEP DISORDER [None]
  - WEIGHT INCREASED [None]
